FAERS Safety Report 8435438-9 (Version None)
Quarter: 2012Q2

REPORT INFORMATION
  Report Type: 
  Country: None (occurrence: None)
  Receive Date: 20120608
  Receipt Date: 20120608
  Transmission Date: 20120825
  Serious: No
  Sender: FDA-Public Use
  Company Number: None

PATIENT
  Sex: Female

DRUGS (1)
  1. ENBREL [Suspect]
     Indication: RHEUMATOID ARTHRITIS
     Dosage: 50MG, QW, SQ
     Dates: start: 20120106, end: 20120505

REACTIONS (2)
  - LYMPHADENOPATHY [None]
  - STAPHYLOCOCCAL INFECTION [None]
